FAERS Safety Report 9234014 (Version 1)
Quarter: 2013Q1

REPORT INFORMATION
  Report Type: Spontaneous
  Country: US (occurrence: None)
  Receive Date: 20121031
  Receipt Date: 20121031
  Transmission Date: 20140127
  Serious: No
  Sender: FDA-Public Use
  Company Number: PHEH2012US016397

PATIENT
  Age: 65 Year
  Sex: Female

DRUGS (10)
  1. GILENYA (FTY)CAPSULE, 0.5MG [Suspect]
     Indication: MULTIPLE SCLEROSIS
     Route: 048
     Dates: start: 20120816
  2. OMEPRAZOLE (OMEPRAZOLE) [Concomitant]
  3. GABAPENTIN (GABAPENTIN) [Concomitant]
  4. HYDROCHLORTHIAZIDE (HYDROCHLOROTHIAZIDE) [Concomitant]
  5. CYCLOBENZAPRINE (CYCLOBENZAPRINE) [Concomitant]
  6. IRON (IRON) [Concomitant]
  7. KLONOPIN (CLONAZEPAM) [Concomitant]
  8. HYDROCODONE, (HYDROCODONE) [Concomitant]
  9. CALCIUM WITH VITAMIN D (CALCIUM PHOSPHATE, CALCIUM SODIUIM LACTATE, ERGOCALCIFEROL) [Concomitant]
  10. ONE-A-DAY WOMAN^S [Concomitant]

REACTIONS (1)
  - Nausea [None]
